FAERS Safety Report 4286501-8 (Version None)
Quarter: 2004Q1

REPORT INFORMATION
  Report Type: 
  Country: None (occurrence: None)
  Receive Date: 20040204
  Receipt Date: 20040128
  Transmission Date: 20041129
  Serious: Yes (Hospitalization, Other)
  Sender: FDA-Public Use
  Company Number: 2004196631US

PATIENT
  Age: 36 Year
  Sex: Male

DRUGS (1)
  1. HEPARIN SODIUM INJECTION [Suspect]

REACTIONS (6)
  - ADRENAL DISORDER [None]
  - HEPARIN-INDUCED THROMBOCYTOPENIA [None]
  - HEPATIC INFARCTION [None]
  - INFARCTION [None]
  - INTERNATIONAL NORMALISED RATIO DECREASED [None]
  - PULMONARY EMBOLISM [None]
